FAERS Safety Report 14431380 (Version 2)
Quarter: 2018Q3

REPORT INFORMATION
  Report Type: Spontaneous
  Country: US (occurrence: US)
  Receive Date: 20180124
  Receipt Date: 20180716
  Transmission Date: 20181010
  Serious: No
  Sender: FDA-Public Use
  Company Number: US-PFIZER INC-2018029081

PATIENT
  Age: 37 Year
  Sex: Male

DRUGS (1)
  1. SUTENT [Suspect]
     Active Substance: SUNITINIB MALATE
     Indication: GASTROINTESTINAL STROMAL TUMOUR
     Dosage: 50 MG, CYCLIC (28 DAYS ON/14 DAYS OFF)

REACTIONS (7)
  - Skin exfoliation [Unknown]
  - Diarrhoea [Unknown]
  - Blood pressure increased [Unknown]
  - Yellow skin [Unknown]
  - Tongue discomfort [Unknown]
  - Tongue blistering [Unknown]
  - Nausea [Unknown]
